FAERS Safety Report 24439845 (Version 1)
Quarter: 2024Q4

REPORT INFORMATION
  Report Type: Report from Study
  Country: CZ (occurrence: CZ)
  Receive Date: 20241015
  Receipt Date: 20241015
  Transmission Date: 20250115
  Serious: Yes (Hospitalization)
  Sender: ABBVIE
  Company Number: CZ-ABBVIE-5959860

PATIENT
  Age: 37 Year
  Sex: Male

DRUGS (3)
  1. HUMIRA [Suspect]
     Active Substance: ADALIMUMAB
     Indication: Psoriasis
     Dosage: 80MG IN WEEK 0
     Route: 058
     Dates: start: 20240821, end: 20240821
  2. HUMIRA [Suspect]
     Active Substance: ADALIMUMAB
     Dosage: 40MG IN WEEK 1?END DATE 2024
     Route: 058
     Dates: start: 202408
  3. HUMIRA [Suspect]
     Active Substance: ADALIMUMAB
     Route: 058
     Dates: end: 20241002

REACTIONS (3)
  - Peritonsillar abscess [Recovering/Resolving]
  - Tonsillitis [Recovering/Resolving]
  - Palmoplantar pustulosis [Recovering/Resolving]

NARRATIVE: CASE EVENT DATE: 20240911
